FAERS Safety Report 4709015-7 (Version None)
Quarter: 2005Q3

REPORT INFORMATION
  Report Type: 
  Country: None (occurrence: None)
  Receive Date: 20050707
  Receipt Date: 20050623
  Transmission Date: 20060218
  Serious: Yes (Other)
  Sender: FDA-Public Use
  Company Number: 430053K05USA

PATIENT
  Age: 53 Year
  Sex: Female

DRUGS (2)
  1. NOVANTRONE [Suspect]
     Indication: MULTIPLE SCLEROSIS
     Dosage: 10 MG, 1 IN 3 MONTHS, INTRAVENOUS
     Route: 042
  2. AVONEX [Concomitant]

REACTIONS (7)
  - ASTHENIA [None]
  - DIFFICULTY IN WALKING [None]
  - DISEASE PROGRESSION [None]
  - MULTIPLE SCLEROSIS [None]
  - OVARIAN CYST [None]
  - PARAESTHESIA [None]
  - POLYP [None]
